FAERS Safety Report 10658654 (Version 1)
Quarter: 2014Q4

REPORT INFORMATION
  Report Type: Report from Study
  Country: IT (occurrence: IT)
  Receive Date: 20141217
  Receipt Date: 20141217
  Transmission Date: 20150529
  Serious: Yes (Other)
  Sender: FDA-Public Use
  Company Number: IT-BAXTER-2014BAX073887

PATIENT

DRUGS (9)
  1. DEXAMETHASONE. [Suspect]
     Active Substance: DEXAMETHASONE
     Indication: PLASMA CELL MYELOMA
     Dosage: ON DAYS 1-4 FOR 3 CYCLES OF A 21 DAY CYLE
     Route: 065
  2. BORTEZOMIB [Suspect]
     Active Substance: BORTEZOMIB
     Dosage: DAY 1-21
     Route: 065
  3. MELPHALAN [Suspect]
     Active Substance: MELPHALAN
     Indication: STEM CELL TRANSPLANT
     Dosage: BASED ON A CONDITIONING REGIMEN
     Route: 065
  4. BORTEZOMIB [Suspect]
     Active Substance: BORTEZOMIB
     Indication: PLASMA CELL MYELOMA
     Dosage: ON DAYS 1, 4, 8 AND 11 AND 15 DAYS AFTER THAT LAST DOSE
     Route: 065
  5. G-CSF [Suspect]
     Active Substance: FILGRASTIM
     Indication: BLOOD STEM CELL HARVEST
     Route: 065
  6. INTERFERON NOS [Suspect]
     Active Substance: INTERFERON
     Indication: PRODUCT USED FOR UNKNOWN INDICATION
     Dosage: TWICE A WEEK UNTIL PROGRESSION
     Route: 065
  7. VINCRISTINE [Suspect]
     Active Substance: VINCRISTINE
     Indication: PLASMA CELL MYELOMA
     Dosage: FOR 3 CYCLES OF A 21 DAY CYLE
     Route: 065
  8. ADRIAMYCIN [Suspect]
     Active Substance: DOXORUBICIN HYDROCHLORIDE
     Indication: PLASMA CELL MYELOMA
     Dosage: ON DAY 1 FOR 3 CYCLES OF A 21 DAY CYLE
     Route: 065
  9. ENDOXAN BAXTER [Suspect]
     Active Substance: CYCLOPHOSPHAMIDE
     Indication: PLASMA CELL MYELOMA
     Dosage: 4 G/M2 FOR 3 CYCLES OF A 21 DAY CYLE
     Route: 065

REACTIONS (1)
  - Plasma cell myeloma recurrent [Unknown]
